FAERS Safety Report 5712563-4 (Version None)
Quarter: 2008Q2

REPORT INFORMATION
  Report Type: 
  Country: None (occurrence: None)
  Receive Date: 20080422
  Receipt Date: 20080409
  Transmission Date: 20081010
  Serious: Yes (Other)
  Sender: FDA-Public Use
  Company Number: US-AMGEN-QUU273776

PATIENT
  Sex: Female

DRUGS (2)
  1. ENBREL [Suspect]
     Indication: PSORIATIC ARTHROPATHY
     Route: 058
     Dates: start: 20030811
  2. ENBREL [Suspect]
     Indication: PSORIASIS

REACTIONS (5)
  - BENIGN NEOPLASM [None]
  - BRONCHITIS [None]
  - CARBON MONOXIDE POISONING [None]
  - DIABETES MELLITUS [None]
  - INJECTION SITE IRRITATION [None]
